FAERS Safety Report 6349275-2 (Version None)
Quarter: 2009Q3

REPORT INFORMATION
  Report Type: 
  Country: None (occurrence: None)
  Receive Date: 20090911
  Receipt Date: 20090909
  Transmission Date: 20100115
  Serious: Yes (Hospitalization)
  Sender: FDA-Public Use
  Company Number: A0806569A

PATIENT
  Age: 57 Year
  Sex: Female

DRUGS (5)
  1. ADVAIR HFA [Suspect]
     Indication: CHRONIC OBSTRUCTIVE PULMONARY DISEASE
     Dosage: 1PUFF TWICE PER DAY
     Route: 055
     Dates: start: 20020101
  2. SIMVASTATIN [Concomitant]
  3. CALCIUM [Concomitant]
  4. XOPENEX [Concomitant]
  5. DILTIAZEM [Concomitant]

REACTIONS (6)
  - CONTUSION [None]
  - COUGH [None]
  - DRY SKIN [None]
  - HYPERAESTHESIA [None]
  - INCREASED TENDENCY TO BRUISE [None]
  - SKIN WRINKLING [None]
